FAERS Safety Report 6666259-5 (Version None)
Quarter: 2010Q2

REPORT INFORMATION
  Report Type: 
  Country: None (occurrence: None)
  Receive Date: 20100402
  Receipt Date: 20100326
  Transmission Date: 20101027
  Serious: Yes (Hospitalization)
  Sender: FDA-Public Use
  Company Number: AR-JNJFOC-20100400258

PATIENT
  Sex: Male
  Weight: 7.4 kg

DRUGS (3)
  1. IBUPIRAC 2% [Suspect]
     Indication: PYREXIA
     Dosage: AS NEEDED
     Route: 048
  2. IRON [Concomitant]
  3. VITAMIN TAB [Concomitant]

REACTIONS (3)
  - GASTROENTERITIS [None]
  - PRODUCT CONTAMINATION MICROBIAL [None]
  - STAPHYLOCOCCAL SCALDED SKIN SYNDROME [None]
